FAERS Safety Report 25919618 (Version 1)
Quarter: 2025Q4

REPORT INFORMATION
  Report Type: Spontaneous
  Country: US (occurrence: US)
  Receive Date: 20251014
  Receipt Date: 20251014
  Transmission Date: 20260118
  Serious: Yes (Hospitalization, Other)
  Sender: ROCHE
  Company Number: US-ROCHE-10000405566

PATIENT
  Sex: Male
  Weight: 90.71 kg

DRUGS (2)
  1. OCREVUS [Suspect]
     Active Substance: OCRELIZUMAB
     Indication: Relapsing-remitting multiple sclerosis
     Route: 065
     Dates: start: 2020
  2. ELIQUIS [Concomitant]
     Active Substance: APIXABAN

REACTIONS (6)
  - Neoplasm malignant [Unknown]
  - Pulmonary embolism [Recovered/Resolved]
  - Blood urine present [Not Recovered/Not Resolved]
  - Pain in extremity [Unknown]
  - Urinary tract infection [Unknown]
  - Asthenia [Unknown]
